FAERS Safety Report 16787838 (Version 1)
Quarter: 2019Q3

REPORT INFORMATION
  Report Type: Spontaneous
  Country: FR (occurrence: FR)
  Receive Date: 20190909
  Receipt Date: 20190909
  Transmission Date: 20191005
  Serious: Yes (Other)
  Sender: FDA-Public Use
  Company Number: FR-MYLANLABS-2019M1083510

PATIENT
  Age: 37 Year
  Sex: Male

DRUGS (4)
  1. PREDNISONE. [Suspect]
     Active Substance: PREDNISONE
     Indication: BONE MARROW RETICULIN FIBROSIS
     Dosage: 80MG/D
     Route: 065
  2. HYDROXYCHLOROQUINE [Suspect]
     Active Substance: HYDROXYCHLOROQUINE
     Indication: BONE MARROW RETICULIN FIBROSIS
     Dosage: UNK
     Route: 065
  3. HYDROXYCHLOROQUINE [Suspect]
     Active Substance: HYDROXYCHLOROQUINE
     Dosage: UNK, Q3D
     Route: 065
  4. MYCOPHENOLATE MOFETIL. [Suspect]
     Active Substance: MYCOPHENOLATE MOFETIL
     Indication: BONE MARROW RETICULIN FIBROSIS
     Dosage: UNK
     Route: 065

REACTIONS (2)
  - Drug dependence [Not Recovered/Not Resolved]
  - Therapeutic product effect variable [Not Recovered/Not Resolved]
